FAERS Safety Report 7820131-3 (Version None)
Quarter: 2011Q4

REPORT INFORMATION
  Report Type: 
  Country: None (occurrence: None)
  Receive Date: 20111018
  Receipt Date: 20111013
  Transmission Date: 20120403
  Serious: Yes (Life-Threatening, Hospitalization, Other)
  Sender: FDA-Public Use
  Company Number: PHEH2011US06860

PATIENT
  Sex: Male

DRUGS (2)
  1. GLEEVEC [Suspect]
     Indication: GASTRIC CANCER
     Dosage: 400 MG, QD
     Route: 048
  2. HEPARIN [Suspect]

REACTIONS (4)
  - NEOPLASM PROGRESSION [None]
  - SHOCK [None]
  - HAEMORRHAGE [None]
  - THROMBOSIS [None]
